FAERS Safety Report 21931920 (Version 2)
Quarter: 2023Q1

REPORT INFORMATION
  Report Type: Spontaneous
  Country: US (occurrence: None)
  Receive Date: 20230131
  Receipt Date: 20230308
  Transmission Date: 20230417
  Serious: Yes (Hospitalization)
  Sender: FDA-Public Use
  Company Number: 2023A019301

PATIENT
  Age: 26957 Day
  Sex: Male
  Weight: 103.9 kg

DRUGS (4)
  1. BRILINTA [Suspect]
     Active Substance: TICAGRELOR
     Indication: Cerebrovascular accident
     Route: 048
     Dates: start: 20230120, end: 20230121
  2. BRILINTA [Suspect]
     Active Substance: TICAGRELOR
     Indication: Carotid artery stenosis
     Route: 048
     Dates: start: 20230120, end: 20230121
  3. BRILINTA [Suspect]
     Active Substance: TICAGRELOR
     Indication: Cerebrovascular accident
     Route: 048
     Dates: start: 20230120, end: 20230121
  4. BRILINTA [Suspect]
     Active Substance: TICAGRELOR
     Indication: Carotid artery stenosis
     Route: 048
     Dates: start: 20230120, end: 20230121

REACTIONS (6)
  - Chest discomfort [Recovered/Resolved]
  - Hypertension [Recovered/Resolved]
  - Nervousness [Recovered/Resolved]
  - Dyspnoea [Recovered/Resolved]
  - Chest pain [Recovered/Resolved]
  - Therapeutic product effect delayed [Unknown]

NARRATIVE: CASE EVENT DATE: 20230120
